FAERS Safety Report 25657316 (Version 2)
Quarter: 2025Q3

REPORT INFORMATION
  Report Type: Spontaneous
  Country: US (occurrence: US)
  Receive Date: 20250808
  Receipt Date: 20250808
  Transmission Date: 20251021
  Serious: No
  Sender: STRIDES
  Company Number: US-STRIDES ARCOLAB LIMITED-2025SP008388

PATIENT
  Sex: Female

DRUGS (3)
  1. TRIAMCINOLONE ACETONIDE [Suspect]
     Active Substance: TRIAMCINOLONE ACETONIDE
     Indication: Erythema
     Route: 061
  2. PREGABALIN [Suspect]
     Active Substance: PREGABALIN
     Indication: Epilepsy
     Route: 065
  3. CENOBAMATE [Concomitant]
     Active Substance: CENOBAMATE
     Indication: Epilepsy
     Route: 065

REACTIONS (2)
  - Rash erythematous [Recovered/Resolved]
  - Off label use [Unknown]
